FAERS Safety Report 25136278 (Version 1)
Quarter: 2025Q1

REPORT INFORMATION
  Report Type: Spontaneous
  Country: US (occurrence: None)
  Receive Date: 20250328
  Receipt Date: 20250328
  Transmission Date: 20250409
  Serious: Yes (Other)
  Sender: FDA-CTU
  Company Number: None

PATIENT
  Age: 3 Year
  Sex: Male
  Weight: 23.6 kg

DRUGS (11)
  1. ABATACEPT [Suspect]
     Active Substance: ABATACEPT
  2. acyclovir 40 MG/ML [Concomitant]
     Dates: start: 20250221
  3. ferrous sulfate 75 MG/ML [Concomitant]
     Dates: start: 20250314
  4. lidocaine-prilocaine cream [Concomitant]
     Dates: start: 20250129
  5. magnesium sulfate 49.2 mg/mL [Concomitant]
     Dates: start: 20250320
  6. ondansetron 4 mg/mL [Concomitant]
     Dates: start: 20240108
  7. CARBOXYMETHYLCELLULOSE SODIUM\DEVICE\SORBINICATE [Concomitant]
     Active Substance: CARBOXYMETHYLCELLULOSE SODIUM\DEVICE\SORBINICATE
     Dates: start: 20240208
  8. sodium citrate-citric acid 500-334 mg/5 mL [Concomitant]
     Dates: start: 20250221
  9. tacrolimus 0.5 MG/ML [Concomitant]
     Dates: start: 20250314
  10. itraconazole 10 MG/ML [Concomitant]
     Dates: start: 20250129
  11. Loratadine 5 MG/ML [Concomitant]
     Dates: start: 20250124

REACTIONS (4)
  - Neutropenia [None]
  - Influenza [None]
  - Otitis media acute [None]
  - Epstein-Barr viraemia [None]

NARRATIVE: CASE EVENT DATE: 20250325
